FAERS Safety Report 12430177 (Version 1)
Quarter: 2016Q2

REPORT INFORMATION
  Report Type: Spontaneous
  Country: PL (occurrence: PL)
  Receive Date: 20160602
  Receipt Date: 20160602
  Transmission Date: 20160815
  Serious: Yes (Hospitalization)
  Sender: FDA-Public Use
  Company Number: PHHY2015PL175709

PATIENT
  Age: 13 Year
  Sex: Female
  Weight: 67 kg

DRUGS (2)
  1. DICLAC DUO [Suspect]
     Active Substance: DICLOFENAC SODIUM
     Indication: ABNORMAL BEHAVIOUR
     Dosage: 750 MG, UNK
     Route: 048
     Dates: start: 20150116
  2. AMLODIPINA [Suspect]
     Active Substance: AMLODIPINE BESYLATE
     Indication: ABNORMAL BEHAVIOUR
     Dosage: 60 MG, UNK
     Route: 048
     Dates: start: 20150116

REACTIONS (7)
  - Intentional overdose [Recovered/Resolved]
  - Somnolence [Recovered/Resolved]
  - Nausea [Recovered/Resolved]
  - Headache [Recovered/Resolved]
  - Visual impairment [Recovered/Resolved]
  - Blood pressure decreased [Recovered/Resolved]
  - Abdominal pain upper [Recovered/Resolved]

NARRATIVE: CASE EVENT DATE: 20150116
